FAERS Safety Report 5674831-4 (Version None)
Quarter: 2008Q2

REPORT INFORMATION
  Report Type: 
  Country: None (occurrence: None)
  Receive Date: 20080311
  Receipt Date: 20070504
  Transmission Date: 20081010
  Serious: Yes (Hospitalization)
  Sender: FDA-Public Use
  Company Number: 263467

PATIENT
  Sex: Male

DRUGS (1)
  1. NOVOSEVEN [Suspect]
     Indication: HAEMATOMA
     Dosage: INTRAVENOUS
     Route: 042

REACTIONS (1)
  - THERAPEUTIC RESPONSE DECREASED [None]
